FAERS Safety Report 5755525-3 (Version None)
Quarter: 2008Q2

REPORT INFORMATION
  Report Type: 
  Country: None (occurrence: None)
  Receive Date: 20080530
  Receipt Date: 20080530
  Transmission Date: 20081010
  Serious: Yes (Hospitalization, Disabling)
  Sender: FDA-Public Use
  Company Number: None

PATIENT
  Age: 64 Year
  Sex: Male
  Weight: 87 kg

DRUGS (1)
  1. RITUXAN [Suspect]
     Indication: LYMPHOMA
     Dosage: 750 MG ONCE IV DRIP
     Route: 041
     Dates: start: 20080529, end: 20080529

REACTIONS (3)
  - CHILLS [None]
  - PAIN [None]
  - RESPIRATORY DISTRESS [None]
